FAERS Safety Report 4556165-4 (Version None)
Quarter: 2005Q1

REPORT INFORMATION
  Report Type: 
  Country: None (occurrence: None)
  Receive Date: 20050119
  Receipt Date: 20050111
  Transmission Date: 20050727
  Serious: Yes (Other)
  Sender: FDA-Public Use
  Company Number: US-ABBOTT-05P-163-0286038-00

PATIENT
  Age: 52 Year
  Sex: Female

DRUGS (1)
  1. DILAUDID [Suspect]
     Indication: PAIN
     Route: 048
     Dates: start: 20050101, end: 20050101

REACTIONS (3)
  - ANOREXIA [None]
  - DRUG INEFFECTIVE [None]
  - EYE SWELLING [None]
